FAERS Safety Report 4622302-6 (Version None)
Quarter: 2005Q1

REPORT INFORMATION
  Report Type: 
  Country: None (occurrence: None)
  Receive Date: 20050328
  Receipt Date: 20050314
  Transmission Date: 20050727
  Serious: Yes (Hospitalization)
  Sender: FDA-Public Use
  Company Number: 2005046245

PATIENT
  Age: 73 Year
  Sex: Male
  Weight: 65 kg

DRUGS (1)
  1. SULFASALAZINE [Suspect]
     Indication: ILL-DEFINED DISORDER
     Dosage: 500 MG (500 MG, 1 IN 1 D) ORAL
     Route: 048
     Dates: end: 20050131

REACTIONS (2)
  - HYPOXIA [None]
  - PULMONARY FIBROSIS [None]
